FAERS Safety Report 8559963-5 (Version None)
Quarter: 2012Q3

REPORT INFORMATION
  Report Type: 
  Country: None (occurrence: None)
  Receive Date: 20120802
  Receipt Date: 20120725
  Transmission Date: 20120928
  Serious: Yes (Hospitalization, Other)
  Sender: FDA-Public Use
  Company Number: US-US-EMD SERONO, INC.-7147841

PATIENT
  Sex: Female
  Weight: 69 kg

DRUGS (2)
  1. REBIF [Suspect]
     Indication: MULTIPLE SCLEROSIS
     Route: 058
     Dates: start: 20050829
  2. PROZAC [Concomitant]
     Indication: DEPRESSION
     Dates: start: 20100201

REACTIONS (3)
  - DEPRESSION [None]
  - SUICIDAL IDEATION [None]
  - CONVULSION [None]
